FAERS Safety Report 13770369 (Version 1)
Quarter: 2017Q3

REPORT INFORMATION
  Report Type: Spontaneous
  Country: US (occurrence: US)
  Receive Date: 20170719
  Receipt Date: 20170719
  Transmission Date: 20171127
  Serious: Yes (Hospitalization, Other)
  Sender: FDA-Public Use
  Company Number: None

PATIENT
  Age: 51 Year
  Sex: Female
  Weight: 85.5 kg

DRUGS (1)
  1. HUMIRA [Suspect]
     Active Substance: ADALIMUMAB
     Indication: RHEUMATOID ARTHRITIS
     Dosage: ?          QUANTITY:1 INJECTION 40 MG;OTHER FREQUENCY:2 WEEKS;?
     Route: 058
     Dates: start: 20170712

REACTIONS (2)
  - Sunburn [None]
  - Blister [None]

NARRATIVE: CASE EVENT DATE: 20170714
